FAERS Safety Report 5969318-5 (Version None)
Quarter: 2008Q4

REPORT INFORMATION
  Report Type: 
  Country: None (occurrence: None)
  Receive Date: 20081126
  Receipt Date: 20081119
  Transmission Date: 20090506
  Serious: Yes (Other)
  Sender: FDA-Public Use
  Company Number: US-PFIZER INC-2008012067

PATIENT
  Sex: Male
  Weight: 102.1 kg

DRUGS (10)
  1. CHANTIX [Interacting]
     Indication: SMOKING CESSATION THERAPY
     Route: 048
     Dates: start: 20080101, end: 20081016
  2. CHANTIX [Interacting]
     Indication: TOBACCO ABUSE
  3. LITHIUM CARBONATE [Interacting]
  4. KLONOPIN [Interacting]
  5. THORAZINE [Interacting]
  6. BUTALBITAL [Interacting]
  7. WELLBUTRIN [Suspect]
  8. CORGARD [Concomitant]
  9. TOBACCO [Concomitant]
  10. DRUG, UNSPECIFIED [Concomitant]

REACTIONS (5)
  - ANXIETY [None]
  - DRUG INTERACTION [None]
  - ORAL SURGERY [None]
  - PARANOIA [None]
  - ROAD TRAFFIC ACCIDENT [None]
